FAERS Safety Report 20739188 (Version 1)
Quarter: 2022Q2

REPORT INFORMATION
  Report Type: Spontaneous
  Country: US (occurrence: None)
  Receive Date: 20220421
  Receipt Date: 20220421
  Transmission Date: 20220720
  Serious: Yes (unspecified)
  Sender: FDA-Public Use
  Company Number: None

PATIENT
  Age: 53 Year
  Sex: Female
  Weight: 89.1 kg

DRUGS (14)
  1. AMBI SKINCARE NORMAL SKIN FADE [Suspect]
     Active Substance: HYDROQUINONE\OCTINOXATE
     Indication: Skin discolouration
     Dosage: OTHER ROUTE : ON SKIN;?
     Route: 050
     Dates: start: 20220418, end: 20220419
  2. FAMOTIDINE [Concomitant]
     Active Substance: FAMOTIDINE
  3. ALLEGRA [Concomitant]
     Active Substance: FEXOFENADINE HYDROCHLORIDE
  4. FLONASE [Concomitant]
     Active Substance: FLUTICASONE PROPIONATE
  5. PHENYLEPHRINE [Concomitant]
     Active Substance: PHENYLEPHRINE HYDROCHLORIDE
  6. PREGABALIN [Concomitant]
     Active Substance: PREGABALIN
  7. TYLENOL WITH CODEINE [Concomitant]
     Active Substance: ACETAMINOPHEN\CODEINE PHOSPHATE
  8. LEVOTHYROXINE [Concomitant]
     Active Substance: LEVOTHYROXINE
  9. isorbide mono er [Concomitant]
  10. EZETIMIBE [Concomitant]
     Active Substance: EZETIMIBE
  11. CRESTOR [Concomitant]
     Active Substance: ROSUVASTATIN CALCIUM
  12. METOPROLOL [Concomitant]
     Active Substance: METOPROLOL
  13. alive women energy [Concomitant]
  14. estroven menopause and stress [Concomitant]

REACTIONS (5)
  - Lip swelling [None]
  - Urticaria [None]
  - Pruritus [None]
  - Pyrexia [None]
  - Chills [None]

NARRATIVE: CASE EVENT DATE: 20220419
